FAERS Safety Report 10312023 (Version 6)
Quarter: 2014Q3

REPORT INFORMATION
  Report Type: Report from Study
  Country: BR (occurrence: BR)
  Receive Date: 20140717
  Receipt Date: 20140912
  Transmission Date: 20150326
  Serious: Yes (Other)
  Sender: FDA-Public Use
  Company Number: BR-US-EMD SERONO, INC.-7306662

PATIENT
  Age: 53 Year
  Sex: Female

DRUGS (11)
  1. SERTRALINE [Concomitant]
     Active Substance: SERTRALINE HYDROCHLORIDE
     Indication: OBSESSIVE-COMPULSIVE DISORDER
     Dosage: SERTRALINE 50 (UNITS UNSPECIFIED)
     Dates: start: 2001
  2. VITALUX                            /01586901/ [Concomitant]
     Indication: MACULAR DEGENERATION
     Dosage: VITALUX PLUS
     Dates: start: 2009
  3. OMEGA 3 [Concomitant]
     Active Substance: OMEGA-3 FATTY ACIDS
     Indication: MACULAR DEGENERATION
     Dates: start: 2009
  4. DEPURAN                            /00618701/ [Concomitant]
     Indication: PRODUCT USED FOR UNKNOWN INDICATION
  5. DIPYRONE [Concomitant]
     Active Substance: DIPYRONE
     Indication: PRODUCT USED FOR UNKNOWN INDICATION
  6. SERTRALINE [Concomitant]
     Active Substance: SERTRALINE HYDROCHLORIDE
  7. BUDESONIDE. [Concomitant]
     Active Substance: BUDESONIDE
     Indication: RHINITIS ALLERGIC
     Route: 045
     Dates: start: 2010
  8. REBIF [Suspect]
     Active Substance: INTERFERON BETA-1A
     Indication: RELAPSING-REMITTING MULTIPLE SCLEROSIS
     Dates: start: 20140415, end: 20140528
  9. REBIF [Suspect]
     Active Substance: INTERFERON BETA-1A
     Dates: start: 20140711, end: 20140904
  10. ALPRAZOLAM. [Concomitant]
     Active Substance: ALPRAZOLAM
     Indication: OBSESSIVE-COMPULSIVE DISORDER
     Dates: start: 2001
  11. SYSTANE                            /00678601/ [Concomitant]
     Indication: DRY EYE
     Route: 047
     Dates: start: 2011

REACTIONS (8)
  - Lack of injection site rotation [Unknown]
  - Blood alkaline phosphatase increased [Unknown]
  - Aspartate aminotransferase increased [Unknown]
  - Incorrect dose administered [Unknown]
  - Musculoskeletal stiffness [Not Recovered/Not Resolved]
  - Platelet count decreased [Recovered/Resolved]
  - Gamma-glutamyltransferase increased [Unknown]
  - Alanine aminotransferase increased [Unknown]

NARRATIVE: CASE EVENT DATE: 201407
